FAERS Safety Report 9548148 (Version 1)
Quarter: 2013Q3

REPORT INFORMATION
  Report Type: Report from Study
  Country: US (occurrence: US)
  Receive Date: 20130924
  Receipt Date: 20130924
  Transmission Date: 20140515
  Serious: Yes (Life-Threatening)
  Sender: FDA-Public Use
  Company Number: PHHO2013US012212

PATIENT
  Age: 70 Year
  Sex: Female
  Weight: 72.56 kg

DRUGS (4)
  1. ACZ885 [Suspect]
     Indication: CARDIOVASCULAR EVENT PROPHYLAXIS
     Dosage: 300 MG, UNK
     Route: 058
     Dates: start: 20121102, end: 20130501
  2. MORTIN [Concomitant]
  3. PREDNISONE [Concomitant]
  4. ZANTAC [Concomitant]

REACTIONS (1)
  - Diffuse large B-cell lymphoma [Not Recovered/Not Resolved]
